FAERS Safety Report 23410742 (Version 1)
Quarter: 2024Q1

REPORT INFORMATION
  Report Type: Spontaneous
  Country: US (occurrence: US)
  Receive Date: 20240117
  Receipt Date: 20240117
  Transmission Date: 20240409
  Serious: No
  Sender: FDA-Public Use
  Company Number: US-SK LIFE SCIENCE, INC-SKPVG-2023-000067

PATIENT

DRUGS (3)
  1. XCOPRI [Suspect]
     Active Substance: CENOBAMATE
     Indication: Seizure
     Dosage: 12.5 MILLIGRAM, ONCE DAILY
     Route: 048
     Dates: start: 202301
  2. XCOPRI [Suspect]
     Active Substance: CENOBAMATE
     Indication: Petit mal epilepsy
     Dosage: 25 MILLIGRAM, ONCE DAILY
     Route: 048
     Dates: start: 202301
  3. XCOPRI [Suspect]
     Active Substance: CENOBAMATE
     Dosage: 12.5 MILLIGRAM, ONCE DAILY
     Route: 048
     Dates: start: 202301

REACTIONS (4)
  - Petit mal epilepsy [Recovering/Resolving]
  - Chest pain [Recovering/Resolving]
  - Product use issue [Not Recovered/Not Resolved]
  - Balance disorder [Recovering/Resolving]

NARRATIVE: CASE EVENT DATE: 20230101
